FAERS Safety Report 9503110 (Version 1)
Quarter: 2013Q3

REPORT INFORMATION
  Report Type: Spontaneous
  Country: US (occurrence: US)
  Receive Date: 20130906
  Receipt Date: 20130906
  Transmission Date: 20140515
  Serious: Yes (Hospitalization)
  Sender: FDA-Public Use
  Company Number: US-PFIZER INC-2013255271

PATIENT
  Age: 72 Year
  Sex: Male
  Weight: 61.22 kg

DRUGS (3)
  1. VFEND [Suspect]
     Indication: ASPERGILLUS INFECTION
     Dosage: 200 MG, 2X/DAY
     Route: 048
     Dates: start: 2011
  2. THEOPHYLLINE [Concomitant]
     Dosage: 300 MG, 2X/DAY
  3. SPIRIVA [Concomitant]
     Dosage: UNK

REACTIONS (5)
  - Ill-defined disorder [Recovered/Resolved]
  - Malaise [Recovered/Resolved]
  - Aphagia [Recovered/Resolved]
  - Dysphagia [Recovered/Resolved]
  - Dehydration [Recovered/Resolved]
